FAERS Safety Report 17139019 (Version 1)
Quarter: 2019Q4

REPORT INFORMATION
  Report Type: Spontaneous
  Country: US (occurrence: US)
  Receive Date: 20191210
  Receipt Date: 20191210
  Transmission Date: 20200122
  Serious: Yes (Disabling)
  Sender: FDA-Public Use
  Company Number: None

PATIENT
  Age: 48 Year
  Sex: Female
  Weight: 58.5 kg

DRUGS (1)
  1. SINGULAIR [Suspect]
     Active Substance: MONTELUKAST SODIUM
     Indication: ASTHMA EXERCISE INDUCED
     Route: 048
     Dates: start: 20171201, end: 20180615

REACTIONS (5)
  - Dizziness [None]
  - Anxiety [None]
  - Suicidal ideation [None]
  - Hyperventilation [None]
  - Hypoaesthesia [None]

NARRATIVE: CASE EVENT DATE: 20180601
